FAERS Safety Report 7402718-5 (Version None)
Quarter: 2011Q2

REPORT INFORMATION
  Report Type: 
  Country: None (occurrence: None)
  Receive Date: 20110408
  Receipt Date: 20110328
  Transmission Date: 20111010
  Serious: Yes (Death, Hospitalization, Other)
  Sender: FDA-Public Use
  Company Number: HU-AMGEN-QUU443261

PATIENT
  Age: 59 Year
  Sex: Female

DRUGS (1)
  1. ENBREL [Suspect]
     Indication: RHEUMATOID ARTHRITIS
     Dosage: 50 MG, QWK
     Route: 058
     Dates: start: 20100501, end: 20100601

REACTIONS (6)
  - ACUTE RESPIRATORY FAILURE [None]
  - PANCREATITIS HAEMORRHAGIC [None]
  - ENTERITIS INFECTIOUS [None]
  - CARDIAC FAILURE [None]
  - ERYSIPELAS [None]
  - DEHYDRATION [None]
